FAERS Safety Report 19683011 (Version 2)
Quarter: 2021Q3

REPORT INFORMATION
  Report Type: Spontaneous
  Country: HR (occurrence: HR)
  Receive Date: 20210810
  Receipt Date: 20210817
  Transmission Date: 20211014
  Serious: Yes (Hospitalization)
  Sender: FDA-Public Use
  Company Number: HR-BAUSCH-BL-2021-026916

PATIENT
  Age: 46 Year
  Sex: Female

DRUGS (18)
  1. SULPHAMETHOXAZOLE/TRIMETHOPRIM [Interacting]
     Active Substance: SULFAMETHOXAZOLE\TRIMETHOPRIM
     Indication: URINARY TRACT INFECTION
     Dosage: DOSE: 400/80MG , BID
     Route: 065
  2. PROPRANOLOL [Concomitant]
     Active Substance: PROPRANOLOL HYDROCHLORIDE
     Indication: MIGRAINE
     Dosage: 20 MILLIGRAM,  (3X20 MG/DAY)
     Route: 048
  3. CEFUROXIME. [Interacting]
     Active Substance: CEFUROXIME
     Indication: URINARY TRACT INFECTION
     Route: 048
  4. FENOFIBRATE W/SIMVASTATIN [Suspect]
     Active Substance: FENOFIBRATE\SIMVASTATIN
     Dosage: DOSE: 145/40MG
     Route: 065
  5. POTASSIUM CITRATE. [Concomitant]
     Active Substance: POTASSIUM CITRATE
     Indication: SUPPLEMENTATION THERAPY
  6. CEFUROXIME. [Interacting]
     Active Substance: CEFUROXIME
     Indication: PNEUMONIA
  7. CALCITRIOL. [Concomitant]
     Active Substance: CALCITRIOL
     Indication: PRODUCT USED FOR UNKNOWN INDICATION
     Dosage: EVERY OTHER DAY
     Route: 048
  8. FENOFIBRATE W/SIMVASTATIN [Suspect]
     Active Substance: FENOFIBRATE\SIMVASTATIN
     Indication: DYSLIPIDAEMIA
     Dosage: DOSE: 145/20MG
     Route: 065
  9. CEFTRIAXONE. [Interacting]
     Active Substance: CEFTRIAXONE
     Indication: PNEUMONIA
     Route: 042
  10. PREDNISONE. [Concomitant]
     Active Substance: PREDNISONE
     Indication: PRODUCT USED FOR UNKNOWN INDICATION
     Route: 048
  11. CALCIUM CARBONATE. [Concomitant]
     Active Substance: CALCIUM CARBONATE
     Indication: PRODUCT USED FOR UNKNOWN INDICATION
     Dosage: THRICE
  12. POTASSIUM HYDROGEN CARBONATE [Concomitant]
     Indication: SUPPLEMENTATION THERAPY
  13. DICLOFENAC [Suspect]
     Active Substance: DICLOFENAC
     Indication: MIGRAINE
     Route: 065
  14. FUROSEMIDE. [Interacting]
     Active Substance: FUROSEMIDE
     Indication: NEPHROPATHY TOXIC
     Route: 048
  15. DICLOFENAC [Interacting]
     Active Substance: DICLOFENAC
     Route: 065
  16. CEFTRIAXONE. [Interacting]
     Active Substance: CEFTRIAXONE
     Indication: URINARY TRACT INFECTION
  17. PANTOPRAZOLE [Interacting]
     Active Substance: PANTOPRAZOLE
     Indication: PRODUCT USED FOR UNKNOWN INDICATION
     Route: 048
  18. ATORVASTATIN [Interacting]
     Active Substance: ATORVASTATIN
     Indication: DYSLIPIDAEMIA
     Route: 048

REACTIONS (4)
  - Nephrotic syndrome [Recovered/Resolved]
  - Acute kidney injury [Recovered/Resolved]
  - Drug-induced liver injury [Recovered/Resolved]
  - Drug interaction [Unknown]
